FAERS Safety Report 14560834 (Version 2)
Quarter: 2018Q1

REPORT INFORMATION
  Report Type: Report from Study
  Country: None (occurrence: TR)
  Receive Date: 20180222
  Receipt Date: 20180313
  Transmission Date: 20180509
  Serious: Yes (Hospitalization)
  Sender: FDA-Public Use
  Company Number: TR-ABBVIE-18K-161-2264852-00

PATIENT
  Age: 74 Year
  Sex: Male
  Weight: 66 kg

DRUGS (11)
  1. MOTILIUM [Concomitant]
     Active Substance: DOMPERIDONE
     Indication: PARKINSON^S DISEASE
     Route: 048
     Dates: start: 2015
  2. UROREC [Concomitant]
     Active Substance: SILODOSIN
     Indication: INCONTINENCE
     Route: 048
     Dates: start: 2017
  3. ASTONIN [Concomitant]
     Indication: ORTHOSTATIC HYPOTENSION
     Dosage: 1/4+1/2
     Route: 048
     Dates: start: 2017
  4. LUSTRAL [Concomitant]
     Active Substance: SERTRALINE HYDROCHLORIDE
     Indication: PARKINSON^S DISEASE
     Route: 048
     Dates: start: 2015, end: 20180220
  5. BENEXOL [Concomitant]
     Active Substance: CYANOCOBALAMIN\PYRIDOXINE\THIAMINE
     Indication: VITAMIN SUPPLEMENTATION
     Route: 048
     Dates: start: 2018
  6. DUODOPA [Suspect]
     Active Substance: CARBIDOPA\LEVODOPA
     Indication: PARKINSON^S DISEASE
     Dosage: MORNING DOSE(ML):0.00??CONTINOUS DOSE(ML):4.50??EXTRA DOSE(ML):1.00
     Route: 050
     Dates: start: 20180212, end: 201802
  7. DESYREL [Concomitant]
     Active Substance: TRAZODONE HYDROCHLORIDE
     Indication: PARKINSON^S DISEASE
     Route: 048
     Dates: start: 2015
  8. PARLIN [Concomitant]
     Indication: PARKINSON^S DISEASE
     Route: 048
     Dates: start: 2015
  9. DUODOPA [Suspect]
     Active Substance: CARBIDOPA\LEVODOPA
     Dosage: MORNING DOSE(ML):0.00??CONTINOUS DOSE(ML):5.00??EXTRA DOSE(ML):1.00
     Route: 050
     Dates: start: 201802
  10. PK MERZ [Concomitant]
     Active Substance: AMANTADINE SULFATE
     Indication: PARKINSON^S DISEASE
     Route: 048
  11. FOLBIOL [Concomitant]
     Active Substance: FOLIC ACID
     Indication: VITAMIN SUPPLEMENTATION
     Route: 048
     Dates: start: 2018

REACTIONS (2)
  - Anxiety [Recovered/Resolved]
  - Tremor [Recovered/Resolved]

NARRATIVE: CASE EVENT DATE: 20180220
